FAERS Safety Report 11276569 (Version 1)
Quarter: 2015Q3

REPORT INFORMATION
  Report Type: Spontaneous
  Country: None (occurrence: None)
  Receive Date: 20150715
  Receipt Date: 20150715
  Transmission Date: 20151125
  Serious: Yes (Life-Threatening, Hospitalization, Disabling)
  Sender: FDA-Public Use
  Company Number: None

PATIENT
  Age: 81 Year
  Sex: Male
  Weight: 65.77 kg

DRUGS (7)
  1. ATORVASTATIN [Concomitant]
     Active Substance: ATORVASTATIN
  2. BABY ASA [Concomitant]
     Active Substance: ASPIRIN
  3. B-COMPLEX VITAMIN [Concomitant]
  4. POTASSIUM SUPPLEMENT [Concomitant]
  5. PLAVIX [Concomitant]
     Active Substance: CLOPIDOGREL BISULFATE
  6. HCTZ [Concomitant]
     Active Substance: HYDROCHLOROTHIAZIDE
  7. METFOMIN [Suspect]
     Active Substance: METFORMIN HYDROCHLORIDE
     Indication: BLOOD GLUCOSE ABNORMAL
     Dosage: 1
     Route: 048
     Dates: start: 20100701, end: 20150701

REACTIONS (5)
  - Confusional state [None]
  - IIIrd nerve paralysis [None]
  - Cerebrovascular accident [None]
  - Visual impairment [None]
  - Abdominal pain upper [None]

NARRATIVE: CASE EVENT DATE: 20150604
